FAERS Safety Report 7392590-4 (Version None)
Quarter: 2011Q2

REPORT INFORMATION
  Report Type: 
  Country: None (occurrence: None)
  Receive Date: 20110404
  Receipt Date: 20110211
  Transmission Date: 20111010
  Serious: Yes (Other)
  Sender: FDA-Public Use
  Company Number: US-BAYER-201030484NA

PATIENT
  Sex: Female

DRUGS (5)
  1. PRILOSEC [Concomitant]
     Dosage: 40 MG, UNK
     Route: 048
  2. YAZ [Suspect]
     Dosage: UNK
     Route: 048
     Dates: start: 20081004, end: 20091130
  3. ASPIRIN [Concomitant]
     Dosage: UNK
     Route: 048
     Dates: start: 20061215
  4. NEXIUM [Concomitant]
     Dosage: 40 MG, UNK
     Route: 048
  5. METROGEL [Concomitant]
     Dosage: UNK UNK, HS
     Route: 067

REACTIONS (2)
  - DEEP VEIN THROMBOSIS [None]
  - PULMONARY EMBOLISM [None]
